FAERS Safety Report 12354734 (Version 1)
Quarter: 2016Q2

REPORT INFORMATION
  Report Type: Spontaneous
  Country: US (occurrence: None)
  Receive Date: 20160510
  Receipt Date: 20160510
  Transmission Date: 20160815
  Serious: Yes (Other)
  Sender: FDA-Public Use
  Company Number: None

PATIENT
  Age: 73 Year
  Sex: Female
  Weight: 70.76 kg

DRUGS (3)
  1. TYLENOL [Concomitant]
     Active Substance: ACETAMINOPHEN
  2. LISINOPRIL TAB 40MG, 40 MG COURTHOUSE/ACCORD HEA [Suspect]
     Active Substance: LISINOPRIL
     Indication: HYPERTENSION
     Route: 048
  3. ZETIA [Concomitant]
     Active Substance: EZETIMIBE

REACTIONS (4)
  - Product physical issue [None]
  - Product packaging counterfeit [None]
  - Choking [None]
  - Product quality issue [None]
